FAERS Safety Report 7634998-5 (Version None)
Quarter: 2011Q3

REPORT INFORMATION
  Report Type: 
  Country: None (occurrence: None)
  Receive Date: 20110726
  Receipt Date: 20110718
  Transmission Date: 20111222
  Serious: No
  Sender: FDA-Public Use
  Company Number: FR-JNJFOC-20110612792

PATIENT
  Sex: Female
  Weight: 70 kg

DRUGS (2)
  1. DURAGESIC-12 [Suspect]
     Route: 062
  2. DURAGESIC-12 [Suspect]
     Indication: NEOPLASM MALIGNANT
     Route: 062
     Dates: start: 20110107

REACTIONS (3)
  - WRONG TECHNIQUE IN DRUG USAGE PROCESS [None]
  - PRODUCT ADHESION ISSUE [None]
  - INAPPROPRIATE SCHEDULE OF DRUG ADMINISTRATION [None]
